FAERS Safety Report 18738374 (Version 1)
Quarter: 2021Q1

REPORT INFORMATION
  Report Type: Spontaneous
  Country: US (occurrence: US)
  Receive Date: 20210113
  Receipt Date: 20210113
  Transmission Date: 20210419
  Serious: Yes (Hospitalization, Other)
  Sender: FDA-Public Use
  Company Number: US-BAXTER-2021BAX000324

PATIENT
  Age: 91 Year
  Sex: Female

DRUGS (1)
  1. OSMITROL [Suspect]
     Active Substance: MANNITOL
     Indication: CHOROIDAL HAEMORRHAGE
     Dosage: 2 DOSES OF 2 G/KG
     Route: 065

REACTIONS (3)
  - Hyperosmolar state [Recovered/Resolved]
  - Acute kidney injury [Recovered/Resolved]
  - Hyponatraemia [Recovered/Resolved]
